FAERS Safety Report 8469457-3 (Version None)
Quarter: 2012Q2

REPORT INFORMATION
  Report Type: 
  Country: None (occurrence: None)
  Receive Date: 20120621
  Receipt Date: 20120621
  Transmission Date: 20120825
  Serious: Yes (Other)
  Sender: FDA-Public Use
  Company Number: None

PATIENT
  Age: 63 Year
  Sex: Female
  Weight: 73.0291 kg

DRUGS (1)
  1. ACTONEL [Suspect]
     Indication: OSTEOPENIA
     Dosage: 1 TABLET 1 TABLET MONTHLY
     Dates: start: 20120609

REACTIONS (10)
  - PALPITATIONS [None]
  - HEADACHE [None]
  - CONSTIPATION [None]
  - DYSPEPSIA [None]
  - PYREXIA [None]
  - DECREASED APPETITE [None]
  - PAIN IN JAW [None]
  - ARTHRALGIA [None]
  - EYE PAIN [None]
  - CHILLS [None]
